FAERS Safety Report 25339521 (Version 1)
Quarter: 2025Q2

REPORT INFORMATION
  Report Type: Spontaneous
  Country: US (occurrence: US)
  Receive Date: 20250521
  Receipt Date: 20250521
  Transmission Date: 20250716
  Serious: Yes (Hospitalization, Other)
  Sender: CSL BEHRING
  Company Number: US-BEH-2025205369

PATIENT

DRUGS (2)
  1. HIZENTRA [Suspect]
     Active Substance: HUMAN IMMUNOGLOBULIN G
     Indication: Immunodeficiency common variable
     Route: 065
  2. COVID-19 VACCINE NOS [Suspect]
     Active Substance: COVID-19 VACCINE
     Route: 065

REACTIONS (11)
  - Vertigo [Unknown]
  - Fall [Unknown]
  - Impaired quality of life [Unknown]
  - Blood immunoglobulin G decreased [Unknown]
  - Protein total increased [Unknown]
  - Illness [Unknown]
  - Lung disorder [Unknown]
  - Haematocrit increased [Unknown]
  - Anaemia [Unknown]
  - Blood test abnormal [Unknown]
  - Feeling abnormal [Unknown]
